FAERS Safety Report 7271740-4 (Version None)
Quarter: 2011Q1

REPORT INFORMATION
  Report Type: 
  Country: None (occurrence: None)
  Receive Date: 20110203
  Receipt Date: 20110125
  Transmission Date: 20110831
  Serious: Yes (Other)
  Sender: FDA-Public Use
  Company Number: US-RB-019884-11

PATIENT
  Age: 53 Year
  Sex: Female

DRUGS (5)
  1. CLARINEX [Concomitant]
  2. COPAXONE [Concomitant]
  3. MUCINEX DM [Suspect]
     Route: 048
  4. PAXIL [Concomitant]
  5. WELLBUTRIN [Concomitant]

REACTIONS (2)
  - ABNORMAL DREAMS [None]
  - ANXIETY [None]
